FAERS Safety Report 7984011-5 (Version None)
Quarter: 2011Q4

REPORT INFORMATION
  Report Type: 
  Country: None (occurrence: None)
  Receive Date: 20111216
  Receipt Date: 20111213
  Transmission Date: 20120403
  Serious: Yes (Other)
  Sender: FDA-Public Use
  Company Number: FR-PFIZER INC-2011303844

PATIENT
  Age: 12 Year
  Sex: Male

DRUGS (1)
  1. IBUPROFEN (ADVIL) [Suspect]
     Dosage: 100 MG, UNK

REACTIONS (3)
  - MYALGIA [None]
  - CYTOLYTIC HEPATITIS [None]
  - BLOOD CREATINE PHOSPHOKINASE INCREASED [None]
